FAERS Safety Report 6252277-8 (Version None)
Quarter: 2009Q3

REPORT INFORMATION
  Report Type: 
  Country: None (occurrence: None)
  Receive Date: 20090701
  Receipt Date: 20090624
  Transmission Date: 20100115
  Serious: Yes (Hospitalization)
  Sender: FDA-Public Use
  Company Number: CO-ASTRAZENECA-2009UW17312

PATIENT
  Age: 28 Year
  Sex: Female

DRUGS (1)
  1. MERONEM [Suspect]
     Indication: SEPSIS
     Route: 042
     Dates: start: 20090623

REACTIONS (3)
  - ANAPHYLACTIC SHOCK [None]
  - RASH [None]
  - RASH PAPULAR [None]
